FAERS Safety Report 8086483-7 (Version None)
Quarter: 2012Q1

REPORT INFORMATION
  Report Type: 
  Country: None (occurrence: None)
  Receive Date: 20120128
  Receipt Date: 20110505
  Transmission Date: 20120608
  Serious: No
  Sender: FDA-Public Use
  Company Number: US-ABBOTT-11P-163-0724021-00

PATIENT
  Age: 79 Year
  Sex: Female

DRUGS (2)
  1. HUMIRA [Suspect]
     Indication: RHEUMATOID ARTHRITIS
     Dates: start: 20070401
  2. HUMIRA [Suspect]
     Dates: start: 20101101

REACTIONS (3)
  - DRUG INEFFECTIVE [None]
  - INJECTION SITE PAIN [None]
  - CONFUSIONAL STATE [None]
